FAERS Safety Report 18153123 (Version 15)
Quarter: 2022Q2

REPORT INFORMATION
  Report Type: Report from Study
  Country: US (occurrence: US)
  Receive Date: 20200815
  Receipt Date: 20220426
  Transmission Date: 20220721
  Serious: Yes (Hospitalization, Other)
  Sender: FDA-Public Use
  Company Number: US-SHIRE-US202026357

PATIENT
  Age: 65 Year
  Sex: Female
  Weight: 74.83 kg

DRUGS (26)
  1. HUMAN IMMUNOGLOBULIN G [Suspect]
     Active Substance: HUMAN IMMUNOGLOBULIN G
     Indication: Immunoglobulins abnormal
     Dosage: 18 GRAM, Q2WEEKS
     Route: 058
     Dates: start: 20191113
  2. HUMAN IMMUNOGLOBULIN G [Suspect]
     Active Substance: HUMAN IMMUNOGLOBULIN G
     Dosage: 20 GRAM, Q2WEEKS
     Route: 058
     Dates: start: 20191113
  3. LORAZEPAM [Concomitant]
     Active Substance: LORAZEPAM
  4. POTASSIUM [Concomitant]
     Active Substance: POTASSIUM
  5. SIMVASTATIN [Concomitant]
     Active Substance: SIMVASTATIN
  6. ACETAMINOPHEN [Concomitant]
     Active Substance: ACETAMINOPHEN
  7. DIPHENHYDRAMINE [Concomitant]
     Active Substance: DIPHENHYDRAMINE
  8. LIDOCAINE [Concomitant]
     Active Substance: LIDOCAINE
  9. CALCIUM [Concomitant]
     Active Substance: CALCIUM
  10. EPINEPHRINE [Concomitant]
     Active Substance: EPINEPHRINE
  11. SINGULAIR [Concomitant]
     Active Substance: MONTELUKAST SODIUM
  12. SYNTHROID [Concomitant]
     Active Substance: LEVOTHYROXINE SODIUM
  13. ASPIRIN [Concomitant]
     Active Substance: ASPIRIN
  14. ZINC [Concomitant]
     Active Substance: ZINC
  15. VITAMIN B12 [Concomitant]
     Active Substance: CYANOCOBALAMIN
  16. MIRALAX [Concomitant]
     Active Substance: POLYETHYLENE GLYCOL 3350
  17. OMEPRAZOLE [Concomitant]
     Active Substance: OMEPRAZOLE
  18. VITAMIN D3 [Concomitant]
     Active Substance: CHOLECALCIFEROL
  19. AZELASTINE HYDROCHLORIDE [Concomitant]
     Active Substance: AZELASTINE HYDROCHLORIDE
  20. LOSARTAN [Concomitant]
     Active Substance: LOSARTAN
  21. AUGMENTIN [Concomitant]
     Active Substance: AMOXICILLIN\CLAVULANATE POTASSIUM
  22. PROBIOTICS NOS [Concomitant]
     Active Substance: PROBIOTICS NOS
  23. DOXYCYCLINE HYCLATE [Concomitant]
     Active Substance: DOXYCYCLINE HYCLATE
  24. METHYLPREDNISOLONE [Concomitant]
     Active Substance: METHYLPREDNISOLONE
  25. LOSARTAN POTASSIUM [Concomitant]
     Active Substance: LOSARTAN POTASSIUM
  26. RHINOCORT ALLERGY [Concomitant]
     Active Substance: BUDESONIDE

REACTIONS (21)
  - Pneumonia [Unknown]
  - Dehydration [Unknown]
  - Sinus disorder [Unknown]
  - Lower respiratory tract infection [Unknown]
  - Cardiac murmur [Unknown]
  - Infusion site haemorrhage [Unknown]
  - Thyroid disorder [Unknown]
  - Sinusitis [Unknown]
  - COVID-19 [Unknown]
  - Urinary tract infection [Unknown]
  - Pharyngitis streptococcal [Unknown]
  - Candida infection [Unknown]
  - Upper respiratory tract infection [Unknown]
  - Body height decreased [Unknown]
  - Memory impairment [Unknown]
  - Infusion site haemorrhage [Unknown]
  - Conjunctivitis [Unknown]
  - Rash erythematous [Unknown]
  - Malaise [Unknown]
  - Pain [Unknown]
  - Infusion site pain [Unknown]

NARRATIVE: CASE EVENT DATE: 20201103
